FAERS Safety Report 7937406-X (Version None)
Quarter: 2011Q4

REPORT INFORMATION
  Report Type: 
  Country: None (occurrence: None)
  Receive Date: 20111123
  Receipt Date: 20111123
  Transmission Date: 20120403
  Serious: Yes (Death, Other)
  Sender: FDA-Public Use
  Company Number: ID-JNJFOC-20100705091

PATIENT
  Sex: Male
  Weight: 60 kg

DRUGS (2)
  1. DORIBAX [Suspect]
     Indication: PNEUMONIA
     Route: 041
     Dates: start: 20100620, end: 20100627
  2. DORIBAX [Suspect]
     Route: 041
     Dates: start: 20100619, end: 20100619

REACTIONS (3)
  - BRADYCARDIA [None]
  - OXYGEN SATURATION DECREASED [None]
  - ANURIA [None]
